FAERS Safety Report 7675323-3 (Version None)
Quarter: 2011Q3

REPORT INFORMATION
  Report Type: 
  Country: None (occurrence: None)
  Receive Date: 20110810
  Receipt Date: 20110805
  Transmission Date: 20111222
  Serious: Yes (Other)
  Sender: FDA-Public Use
  Company Number: US-ABBOTT-11P-163-0839462-00

PATIENT
  Sex: Female

DRUGS (7)
  1. HUMIRA [Suspect]
     Dosage: 1 IN 2 WKS, RESUMED POSTOPERATIVELY
  2. STARLIX [Concomitant]
     Indication: PRODUCT USED FOR UNKNOWN INDICATION
     Dosage: BEFORE MEALS
  3. JANUMET [Concomitant]
     Indication: DIABETES MELLITUS
     Route: 048
  4. HUMIRA [Suspect]
     Indication: PSORIATIC ARTHROPATHY
     Dates: start: 20060323
  5. HUMIRA [Suspect]
     Indication: PSORIASIS
     Dosage: 1 IN 2 WKS, DISC ONLY BEFORE SURGERY
     Dates: start: 20090701, end: 20110702
  6. PERCOCET [Concomitant]
     Indication: PAIN MANAGEMENT
     Dosage: 7.5/325
  7. MOBIC [Concomitant]
     Indication: PAIN

REACTIONS (2)
  - PAIN [None]
  - BONE DISORDER [None]
